FAERS Safety Report 7396353-5 (Version None)
Quarter: 2011Q2

REPORT INFORMATION
  Report Type: 
  Country: None (occurrence: None)
  Receive Date: 20110406
  Receipt Date: 20110324
  Transmission Date: 20111010
  Serious: Yes (Life-Threatening, Other)
  Sender: FDA-Public Use
  Company Number: FR-CELGENEUS-056-21880-10070961

PATIENT
  Sex: Male
  Weight: 85 kg

DRUGS (5)
  1. VANCOMYCIN [Suspect]
     Route: 065
  2. REVLIMID [Suspect]
     Dosage: 10 MILLIGRAM
     Route: 048
     Dates: start: 20100602, end: 20100619
  3. ARACYTIN [Suspect]
     Dosage: 400 MILLIGRAM
     Route: 051
     Dates: start: 20100602, end: 20100609
  4. DAUNORUBICIN HCL [Suspect]
     Dosage: 120 MILLIGRAM
     Route: 051
     Dates: start: 20100602, end: 20100604
  5. AMBISOME [Suspect]
     Route: 065

REACTIONS (4)
  - SYSTEMIC CANDIDA [None]
  - BRONCHOPULMONARY ASPERGILLOSIS [None]
  - FEBRILE BONE MARROW APLASIA [None]
  - RENAL FAILURE ACUTE [None]
